FAERS Safety Report 15361401 (Version 1)
Quarter: 2018Q3

REPORT INFORMATION
  Report Type: Spontaneous
  Country: IT (occurrence: IT)
  Receive Date: 20180907
  Receipt Date: 20180907
  Transmission Date: 20181010
  Serious: Yes (Other)
  Sender: FDA-Public Use
  Company Number: PHHY2018IT038669

PATIENT

DRUGS (2)
  1. PREDNISONE. [Suspect]
     Active Substance: PREDNISONE
     Indication: CRYOGLOBULINAEMIA
     Dosage: 5 MG, UNK
     Route: 065
  2. RITUXIMAB. [Suspect]
     Active Substance: RITUXIMAB
     Indication: CRYOGLOBULINAEMIA
     Dosage: 1000 MG, (ONE CYCLE WAS 2 WEEKS APART)
     Route: 042

REACTIONS (1)
  - Hepatitis B reactivation [Recovered/Resolved]
